FAERS Safety Report 6528897-X (Version None)
Quarter: 2009Q4

REPORT INFORMATION
  Report Type: 
  Country: None (occurrence: None)
  Receive Date: 20091223
  Receipt Date: 20091214
  Transmission Date: 20100525
  Serious: Yes (Hospitalization)
  Sender: FDA-Public Use
  Company Number: 2009SP041772

PATIENT
  Sex: Female

DRUGS (1)
  1. PREGNYL [Suspect]
     Indication: DRUG USE FOR UNKNOWN INDICATION
     Dates: start: 20090201

REACTIONS (5)
  - INFECTION [None]
  - RASH [None]
  - UNEVALUABLE EVENT [None]
  - VULVAL DISORDER [None]
  - VULVAL HAEMORRHAGE [None]
